FAERS Safety Report 12406416 (Version 2)
Quarter: 2016Q2

REPORT INFORMATION
  Report Type: Spontaneous
  Country: US (occurrence: US)
  Receive Date: 20160526
  Receipt Date: 20160621
  Transmission Date: 20160815
  Serious: No
  Sender: FDA-Public Use
  Company Number: US-PFIZER INC-2016245737

PATIENT
  Age: 52 Year
  Sex: Male
  Weight: 100 kg

DRUGS (3)
  1. LYRICA [Suspect]
     Active Substance: PREGABALIN
     Dosage: 150 MG, DAILY
  2. LYRICA [Suspect]
     Active Substance: PREGABALIN
     Indication: FIBROMYALGIA
     Dosage: 75 MG, UNK
  3. SOMA [Concomitant]
     Active Substance: CARISOPRODOL
     Dosage: UNK, 3X/DAY

REACTIONS (3)
  - Drug ineffective [Unknown]
  - Tremor [Unknown]
  - Impaired work ability [Unknown]
